FAERS Safety Report 10213768 (Version 1)
Quarter: 2014Q2

REPORT INFORMATION
  Report Type: Spontaneous
  Country: US (occurrence: None)
  Receive Date: 20140602
  Receipt Date: 20140602
  Transmission Date: 20141212
  Serious: Yes (Disabling)
  Sender: FDA-Public Use
  Company Number: None

PATIENT
  Age: 57 Year
  Sex: Male
  Weight: 74.84 kg

DRUGS (1)
  1. ORACEA [Suspect]
     Indication: ROSACEA
     Route: 048

REACTIONS (1)
  - Alopecia [None]
